FAERS Safety Report 5412566-3 (Version None)
Quarter: 2007Q3

REPORT INFORMATION
  Report Type: 
  Country: None (occurrence: None)
  Receive Date: 20070813
  Receipt Date: 20070807
  Transmission Date: 20080115
  Serious: Yes (Death, Other)
  Sender: FDA-Public Use
  Company Number: PHBS2007BR13218

PATIENT
  Age: 67 Year
  Sex: Male

DRUGS (2)
  1. CYCLOSPORINE [Suspect]
     Indication: LIVER TRANSPLANT
     Route: 065
  2. CORTICOSTEROIDS [Suspect]
     Indication: LIVER TRANSPLANT
     Route: 065

REACTIONS (13)
  - DIARRHOEA [None]
  - GASTROINTESTINAL DISORDER [None]
  - GRAFT VERSUS HOST DISEASE [None]
  - KAPOSI'S SARCOMA [None]
  - LEUKOPENIA [None]
  - MENINGITIS CRYPTOCOCCAL [None]
  - PNEUMONIA [None]
  - PSEUDOMEMBRANOUS COLITIS [None]
  - PYREXIA [None]
  - RASH MACULO-PAPULAR [None]
  - RESPIRATORY FAILURE [None]
  - SEPSIS [None]
  - SKIN LESION [None]
